FAERS Safety Report 7735123-2 (Version None)
Quarter: 2011Q3

REPORT INFORMATION
  Report Type: 
  Country: None (occurrence: None)
  Receive Date: 20110817
  Receipt Date: 20100726
  Transmission Date: 20111222
  Serious: No
  Sender: FDA-Public Use
  Company Number: 20107953

PATIENT
  Age: 59 Year
  Sex: Male

DRUGS (3)
  1. BUPIVACAINE HCL [Concomitant]
  2. LIORESAL [Suspect]
     Indication: MUSCLE SPASTICITY
     Dosage: 50.66 MCG, DAILY, INTRATHECAL
     Route: 037
  3. DILAUDID [Concomitant]

REACTIONS (2)
  - DEVICE MALFUNCTION [None]
  - DEVICE COMPONENT ISSUE [None]
